FAERS Safety Report 9244432 (Version 1)
Quarter: 2013Q2

REPORT INFORMATION
  Report Type: Spontaneous
  Country: US (occurrence: US)
  Receive Date: 20130422
  Receipt Date: 20130422
  Transmission Date: 20140414
  Serious: Yes (Hospitalization)
  Sender: FDA-Public Use
  Company Number: US-BAYER-2013-049806

PATIENT
  Age: 41 Year
  Sex: Female

DRUGS (7)
  1. YAZ [Suspect]
  2. ZOMIG [Concomitant]
  3. SKELAXIN [Concomitant]
  4. AZITHROMYCIN [Concomitant]
  5. HYDROCODONE W/APAP [Concomitant]
  6. ASTELIN [Concomitant]
  7. VYTORIN [Concomitant]

REACTIONS (2)
  - Pulmonary embolism [None]
  - Deep vein thrombosis [Recovered/Resolved]
